FAERS Safety Report 18826731 (Version 3)
Quarter: 2022Q1

REPORT INFORMATION
  Report Type: Report from Study
  Country: DE (occurrence: DE)
  Receive Date: 20210202
  Receipt Date: 20220310
  Transmission Date: 20220423
  Serious: Yes (Hospitalization)
  Sender: FDA-Public Use
  Company Number: DE-002147023-NVSC2021DE016532

PATIENT

DRUGS (24)
  1. RUXOLITINIB [Suspect]
     Active Substance: RUXOLITINIB
     Indication: Polycythaemia vera
     Dosage: 5 MG, BID
     Route: 048
     Dates: start: 20180522, end: 20181210
  2. RUXOLITINIB [Suspect]
     Active Substance: RUXOLITINIB
     Dosage: 15 MG, QD (10 MG QD AND 5 MG QD)
     Route: 048
     Dates: start: 20181211, end: 20200421
  3. RUXOLITINIB [Suspect]
     Active Substance: RUXOLITINIB
     Dosage: 5 MG, BID
     Route: 048
     Dates: start: 20200422, end: 20200805
  4. RUXOLITINIB [Suspect]
     Active Substance: RUXOLITINIB
     Dosage: 10 MG QD AND 5 MG QD
     Route: 048
     Dates: start: 20200806, end: 20201119
  5. RUXOLITINIB [Suspect]
     Active Substance: RUXOLITINIB
     Dosage: 10 MG, BID
     Route: 048
     Dates: start: 20210416, end: 20210502
  6. RUXOLITINIB [Suspect]
     Active Substance: RUXOLITINIB
     Dosage: 5 MG, QD
     Route: 048
     Dates: start: 20210503
  7. RIVAROXABAN [Concomitant]
     Active Substance: RIVAROXABAN
     Indication: Thrombosis
     Dosage: 20 MG, QD
     Route: 048
     Dates: start: 201608, end: 20200322
  8. RIVAROXABAN [Concomitant]
     Active Substance: RIVAROXABAN
     Dosage: 10 MG, QD (PER DAY)
     Route: 048
     Dates: start: 20200507
  9. ALLOPURINOL [Concomitant]
     Active Substance: ALLOPURINOL
     Indication: Nephrolithiasis
     Dosage: 100 MG, QD (PER DAY)
     Route: 048
  10. CANDESARTAN [Concomitant]
     Active Substance: CANDESARTAN
     Indication: Hypertension
     Dosage: UNK, QD (16/12.5 MG)
     Route: 048
  11. XARELTO [Concomitant]
     Active Substance: RIVAROXABAN
     Indication: Thrombosis
     Dosage: 20 MG, QD (1-0-0-0)
     Route: 048
     Dates: start: 201608, end: 20200322
  12. XARELTO [Concomitant]
     Active Substance: RIVAROXABAN
     Dosage: 10 MG, QD (1-0-0-0)
     Route: 048
     Dates: start: 20200507
  13. ENOXAPARIN SODIUM [Concomitant]
     Active Substance: ENOXAPARIN SODIUM
     Indication: Thrombosis
     Dosage: 8000 IU, QD (PER DAY)
     Route: 058
     Dates: start: 20200323, end: 20200506
  14. TEMOZOLOMIDE [Concomitant]
     Active Substance: TEMOZOLOMIDE
     Indication: Glioblastoma
     Dosage: 140 MG, QD (PER DAY)
     Route: 048
     Dates: start: 20200409, end: 20200609
  15. TEMOZOLOMIDE [Concomitant]
     Active Substance: TEMOZOLOMIDE
     Dosage: 300 MG, 5 DAYS, EVERY 4 WEEKS
     Route: 048
     Dates: start: 20200610
  16. COTRIMOXAZOLE [Concomitant]
     Active Substance: SULFAMETHOXAZOLE\TRIMETHOPRIM
     Indication: Prophylaxis
     Dosage: 960 MG (MONDAY, WEDNESDAY, FRIDAY)
     Route: 048
     Dates: start: 20200409
  17. DEXAMETHASONE [Concomitant]
     Active Substance: DEXAMETHASONE
     Indication: Vertigo
     Dosage: 4 MG, QD (PER DAY)
     Route: 048
     Dates: start: 20200504, end: 20200707
  18. PANTOZOL [Concomitant]
     Active Substance: PANTOPRAZOLE SODIUM
     Indication: Prophylaxis of nausea and vomiting
     Dosage: 40 MG, QD (PER DAY)
     Route: 048
     Dates: start: 20200506, end: 20200707
  19. ONDANSETRON [Concomitant]
     Active Substance: ONDANSETRON
     Indication: Nausea
     Dosage: 8 MG, QD (DAY PRIOR TO INTAKE OF TEMOZOLOMIDE)
     Route: 048
     Dates: start: 20200506
  20. ONDANSETRON [Concomitant]
     Active Substance: ONDANSETRON
     Dosage: 8 MG, QD
     Route: 048
     Dates: start: 20200619
  21. METOCLOPRAMIDE [Concomitant]
     Active Substance: METOCLOPRAMIDE
     Indication: Prophylaxis of nausea and vomiting
     Dosage: 20 MG (PRIOR TO TEMOZOLOMIDE INTAKE)
     Route: 048
     Dates: start: 20200410, end: 20200422
  22. METOCLOPRAMIDE [Concomitant]
     Active Substance: METOCLOPRAMIDE
     Dosage: 10 MG (PRIOR TO TEMOZOLOMIDE INTAKE)
     Route: 048
     Dates: start: 20200423, end: 20200610
  23. METOCLOPRAMIDE [Concomitant]
     Active Substance: METOCLOPRAMIDE
     Dosage: 30  (PRIOR TO TEMOZOLOMIDE INTAKE)
     Route: 048
     Dates: start: 20200611
  24. GRANISETRON [Concomitant]
     Active Substance: GRANISETRON
     Indication: Prophylaxis of nausea and vomiting
     Dosage: 1 MG (PRIOR TO TEMOZOLOMIDE INTAKE)
     Route: 048
     Dates: start: 20200409, end: 20200505

REACTIONS (3)
  - Upper limb fracture [Recovered/Resolved]
  - Fall [Recovered/Resolved]
  - Inappropriate schedule of product administration [Unknown]

NARRATIVE: CASE EVENT DATE: 20181211
